FAERS Safety Report 17538183 (Version 1)
Quarter: 2020Q1

REPORT INFORMATION
  Report Type: Spontaneous
  Country: GB (occurrence: GB)
  Receive Date: 20200313
  Receipt Date: 20200313
  Transmission Date: 20200409
  Serious: Yes (Death, Other)
  Sender: FDA-Public Use
  Company Number: GB-PFIZER INC-2020107452

PATIENT
  Age: 66 Year
  Sex: Male

DRUGS (2)
  1. OXALIPLATIN. [Suspect]
     Active Substance: OXALIPLATIN
     Indication: OESOPHAGEAL CARCINOMA
     Dosage: 1500MG IN COMBINATION, 2X/DAY
     Dates: start: 20190727
  2. CAPECITABINE. [Suspect]
     Active Substance: CAPECITABINE
     Indication: OESOPHAGEAL CARCINOMA
     Dosage: 3000 MG, 1X/DAY
     Route: 048
     Dates: start: 20190727

REACTIONS (5)
  - Product use in unapproved indication [Unknown]
  - Toxicity to various agents [Fatal]
  - Diarrhoea [Fatal]
  - Neutropenia [Fatal]
  - Off label use [Unknown]

NARRATIVE: CASE EVENT DATE: 20190814
